FAERS Safety Report 8553617-7 (Version None)
Quarter: 2012Q3

REPORT INFORMATION
  Report Type: 
  Country: None (occurrence: None)
  Receive Date: 20120731
  Receipt Date: 20120727
  Transmission Date: 20120928
  Serious: Yes (Other)
  Sender: FDA-Public Use
  Company Number: US-GLAXOSMITHKLINE-A0976392A

PATIENT
  Age: 24 Year
  Sex: Female
  Weight: 109.5 kg

DRUGS (2)
  1. ALLI [Suspect]
     Indication: PRODUCT USED FOR UNKNOWN INDICATION
     Route: 048
     Dates: start: 20080101
  2. NONE [Concomitant]

REACTIONS (6)
  - BLOOD TESTOSTERONE INCREASED [None]
  - AMENORRHOEA [None]
  - INFERTILITY [None]
  - POLYCYSTIC OVARIES [None]
  - MENSTRUATION IRREGULAR [None]
  - WEIGHT INCREASED [None]
